FAERS Safety Report 13585774 (Version 4)
Quarter: 2017Q4

REPORT INFORMATION
  Report Type: Spontaneous
  Country: DE (occurrence: DE)
  Receive Date: 20170526
  Receipt Date: 20171016
  Transmission Date: 20180320
  Serious: Yes (Death, Other)
  Sender: FDA-Public Use
  Company Number: DE-PFIZER INC-2017230963

PATIENT
  Age: 66 Year
  Sex: Male
  Weight: 100 kg

DRUGS (5)
  1. MEROPENEM. [Suspect]
     Active Substance: MEROPENEM
     Indication: INFECTION
     Dosage: 1 G, 2X/DAY
     Route: 042
     Dates: start: 20170507, end: 20170513
  2. AGGRASTAT [Suspect]
     Active Substance: TIROFIBAN HYDROCHLORIDE
     Indication: ACUTE MYOCARDIAL INFARCTION
     Dosage: 250 UG, UNK
     Route: 042
     Dates: start: 20170503, end: 20170504
  3. TICAGRELOR. [Suspect]
     Active Substance: TICAGRELOR
     Indication: ACUTE MYOCARDIAL INFARCTION
     Dosage: 180 MG, DAILY (APPLICATION BY STOMACH PROBE)
     Dates: start: 20170503, end: 20170514
  4. NOVAMINSULFON [Suspect]
     Active Substance: METAMIZOLE
     Indication: PYREXIA
     Dosage: UNK UNK, DAILY (DOSAGE UP TO 5 G DAILY)
     Route: 042
     Dates: start: 20170509, end: 20170511
  5. AMIODARONE [Suspect]
     Active Substance: AMIODARONE
     Indication: ATRIAL FIBRILLATION
     Dosage: 1 G, DAILY
     Route: 042
     Dates: start: 20170504, end: 20170514

REACTIONS (2)
  - Thrombocytopenia [Fatal]
  - Pulmonary haemorrhage [Fatal]

NARRATIVE: CASE EVENT DATE: 20170510
